FAERS Safety Report 21306733 (Version 3)
Quarter: 2022Q4

REPORT INFORMATION
  Report Type: Spontaneous
  Country: JP (occurrence: JP)
  Receive Date: 20220908
  Receipt Date: 20221114
  Transmission Date: 20230112
  Serious: Yes (Hospitalization)
  Sender: FDA-Public Use
  Company Number: JP-ELI_LILLY_AND_COMPANY-JP202208015481

PATIENT
  Age: 69 Year
  Sex: Female
  Weight: 34 kg

DRUGS (16)
  1. TALTZ [Suspect]
     Active Substance: IXEKIZUMAB
     Indication: Psoriasis
     Dosage: 80 MG
     Route: 058
     Dates: start: 20200701, end: 20220715
  2. LOXOPROFEN SODIUM [Suspect]
     Active Substance: LOXOPROFEN SODIUM
     Indication: Product used for unknown indication
     Dosage: UNK
     Route: 048
     Dates: start: 20220329
  3. KETOPROFEN [Concomitant]
     Active Substance: KETOPROFEN
     Dosage: UNK
     Dates: start: 2006
  4. FLUVOXAMINE MALEATE [Concomitant]
     Active Substance: FLUVOXAMINE MALEATE
  5. BROTIZOLAM [Concomitant]
     Active Substance: BROTIZOLAM
  6. BROMAZEPAM [Concomitant]
     Active Substance: BROMAZEPAM
  7. GLYCOSAMINOGLYCANS [Concomitant]
     Active Substance: GLYCOSAMINOGLYCANS
  8. TOCOPHERYL NICOTINATE, D-.ALPHA. [Concomitant]
     Active Substance: TOCOPHERYL NICOTINATE, D-.ALPHA.
  9. KERATINAMIN KOWA [UREA] [Concomitant]
  10. FLURBIPROFEN [Concomitant]
     Active Substance: FLURBIPROFEN
  11. VITAMINS NOS [Concomitant]
     Active Substance: VITAMINS
  12. METHYLCOBALAMIN [Concomitant]
     Active Substance: METHYLCOBALAMIN
  13. TOKISHAKUYAKUSANKABUSHI [Concomitant]
  14. TOCOPHEROL [Concomitant]
     Active Substance: TOCOPHEROL
  15. BETAMETHASONE\CALCIPOTRIENE [Concomitant]
     Active Substance: BETAMETHASONE\CALCIPOTRIENE
  16. EFINACONAZOLE [Concomitant]
     Active Substance: EFINACONAZOLE

REACTIONS (1)
  - Inflammatory bowel disease [Unknown]

NARRATIVE: CASE EVENT DATE: 20220329
